FAERS Safety Report 9964358 (Version 3)
Quarter: 2014Q2

REPORT INFORMATION
  Report Type: Spontaneous
  Country: JP (occurrence: JP)
  Receive Date: 20140305
  Receipt Date: 20140401
  Transmission Date: 20141212
  Serious: Yes (Hospitalization)
  Sender: FDA-Public Use
  Company Number: JP-GLAXOSMITHKLINE-B0971476A

PATIENT
  Age: 74 Year
  Sex: Female
  Weight: 47 kg

DRUGS (7)
  1. VALTREX [Suspect]
     Indication: HERPES ZOSTER
     Dosage: 1000MG THREE TIMES PER DAY
     Route: 048
     Dates: start: 20140124, end: 20140130
  2. HYPEN [Suspect]
     Indication: PAIN
     Dosage: 200MG TWICE PER DAY
     Route: 048
     Dates: start: 20140124, end: 20140131
  3. MUCOSTA [Concomitant]
     Dosage: 100MG TWICE PER DAY
     Route: 048
     Dates: start: 20140124, end: 20140131
  4. METHYCOOL [Concomitant]
     Indication: PAIN
     Dosage: 500MCG TWICE PER DAY
     Route: 048
     Dates: start: 20140127
  5. NEUROTROPIN [Concomitant]
     Indication: PAIN
     Dosage: 2IUAX TWICE PER DAY
     Route: 048
     Dates: start: 20140127
  6. CHINESE MEDICINE [Concomitant]
     Indication: IMMUNE ENHANCEMENT THERAPY
     Dosage: 2.5G THREE TIMES PER DAY
     Route: 048
     Dates: start: 20140127, end: 20140210
  7. REBAMIPIDE [Concomitant]
     Indication: GASTRIC DISORDER
     Dosage: 100MG TWICE PER DAY
     Route: 048
     Dates: start: 20140127

REACTIONS (4)
  - Renal impairment [Recovering/Resolving]
  - Hypothermia [Recovered/Resolved]
  - Pyrexia [Unknown]
  - Overdose [Unknown]
